FAERS Safety Report 15404865 (Version 1)
Quarter: 2018Q3

REPORT INFORMATION
  Report Type: Spontaneous
  Country: US (occurrence: US)
  Receive Date: 20180918
  Receipt Date: 20180918
  Transmission Date: 20181010
  Serious: Yes (Hospitalization)
  Sender: FDA-Public Use
  Company Number: None

PATIENT
  Age: 33 Year
  Sex: Male
  Weight: 92.25 kg

DRUGS (7)
  1. NS 0.9% 10ML FLUSH [Concomitant]
  2. SOLUMEDROL 40MG [Concomitant]
     Dates: start: 20180911, end: 20180914
  3. DIPHENHYDRAMINE 25MG PO [Concomitant]
  4. GAMMAPLEX [Suspect]
     Active Substance: HUMAN IMMUNOGLOBULIN G
     Indication: GUILLAIN-BARRE SYNDROME
     Route: 042
     Dates: start: 20180911, end: 20180914
  5. NS 1000ML X 2 BAGS [Concomitant]
  6. HEPARIN FLUSH 100U/ML 5ML [Concomitant]
  7. TYLENOL 325MG CAPLETS [Concomitant]

REACTIONS (3)
  - Headache [None]
  - Neck pain [None]
  - Meningitis aseptic [None]

NARRATIVE: CASE EVENT DATE: 20180917
